FAERS Safety Report 5689614-9 (Version None)
Quarter: 2008Q1

REPORT INFORMATION
  Report Type: 
  Country: None (occurrence: None)
  Receive Date: 20080331
  Receipt Date: 20080306
  Transmission Date: 20080703
  Serious: No
  Sender: FDA-Public Use
  Company Number: US-BOEHRINGER INGELHEIM GMBH, GERMANY-2008-BP-03508BP

PATIENT
  Age: 66 Year
  Sex: Female
  Weight: 113 kg

DRUGS (2)
  1. MICARDIS HCT [Suspect]
     Dates: start: 20080227, end: 20080306
  2. TOPROL-XL [Concomitant]

REACTIONS (1)
  - RASH [None]
